FAERS Safety Report 25370592 (Version 2)
Quarter: 2025Q2

REPORT INFORMATION
  Report Type: Spontaneous
  Country: US (occurrence: US)
  Receive Date: 20250528
  Receipt Date: 20250610
  Transmission Date: 20250717
  Serious: Yes (Other)
  Sender: MERCK SHARP & DOHME LLC
  Company Number: US-009507513-2289274

PATIENT
  Age: 56 Year
  Sex: Female

DRUGS (1)
  1. KEYTRUDA [Suspect]
     Active Substance: PEMBROLIZUMAB
     Indication: Endometrial cancer
     Route: 042

REACTIONS (9)
  - Joint destruction [Unknown]
  - Pain [Not Recovered/Not Resolved]
  - Suicidal ideation [Unknown]
  - Cardiomyopathy [Unknown]
  - Feeling hot [Unknown]
  - Dysstasia [Unknown]
  - Balance disorder [Unknown]
  - Surgery [Unknown]
  - Insomnia [Unknown]

NARRATIVE: CASE EVENT DATE: 20230101
